FAERS Safety Report 19968382 (Version 1)
Quarter: 2021Q4

REPORT INFORMATION
  Report Type: Spontaneous
  Country: US (occurrence: US)
  Receive Date: 20211019
  Receipt Date: 20211019
  Transmission Date: 20220303
  Serious: Yes (Other)
  Sender: FDA-Public Use
  Company Number: None

PATIENT
  Age: 65 Year
  Sex: Female
  Weight: 118.9 kg

DRUGS (5)
  1. REMDESIVIR [Suspect]
     Active Substance: REMDESIVIR
     Indication: COVID-19 pneumonia
     Route: 042
     Dates: start: 20211016, end: 20211017
  2. MIDAZOLAM [Concomitant]
     Active Substance: MIDAZOLAM
     Dates: start: 20211016
  3. FENTANYL [Concomitant]
     Active Substance: FENTANYL
     Dates: start: 20211015
  4. CISATRACURIUM [Concomitant]
     Active Substance: CISATRACURIUM
     Dates: start: 20211016
  5. BARICITINIB [Concomitant]
     Active Substance: BARICITINIB
     Dates: start: 20211017

REACTIONS (1)
  - Bradycardia [None]

NARRATIVE: CASE EVENT DATE: 20211018
